FAERS Safety Report 13411594 (Version 2)
Quarter: 2017Q4

REPORT INFORMATION
  Report Type: Spontaneous
  Country: US (occurrence: US)
  Receive Date: 20170406
  Receipt Date: 20171123
  Transmission Date: 20180320
  Serious: No
  Sender: FDA-Public Use
  Company Number: US-JNJFOC-20170300531

PATIENT
  Sex: Male

DRUGS (12)
  1. RISPERDAL [Suspect]
     Active Substance: RISPERIDONE
     Indication: BIPOLAR DISORDER
     Dosage: IN VARYING DOSES OF 2 MG, 3 MG AND 4 MG
     Route: 048
     Dates: start: 20050210, end: 20150825
  2. RISPERDAL M-TAB [Suspect]
     Active Substance: RISPERIDONE
     Indication: SCHIZOPHRENIA
     Route: 048
     Dates: start: 20101024
  3. RISPERIDONE. [Suspect]
     Active Substance: RISPERIDONE
     Indication: SCHIZOPHRENIA
     Dosage: IN VARYING DOSES OF 1 MG, 2 MG AND 4 MG
     Route: 048
     Dates: start: 20090811, end: 20130828
  4. RISPERIDONE. [Suspect]
     Active Substance: RISPERIDONE
     Indication: SCHIZOPHRENIA
     Dosage: IN VARYING DOSES OF 1 MG, 2 MG, 3 MG AND 4 MG
     Route: 048
     Dates: start: 20090814, end: 20100330
  5. RISPERIDONE. [Suspect]
     Active Substance: RISPERIDONE
     Indication: SCHIZOPHRENIA
     Dosage: VARYING DOSE OF 3MG TWICE A DAY AND 4 MG
     Route: 048
     Dates: start: 20130923, end: 20150616
  6. RISPERIDONE. [Suspect]
     Active Substance: RISPERIDONE
     Indication: BIPOLAR DISORDER
     Dosage: VARYING DOSES OF 3 MG TWICE A DAY AND 4MG
     Route: 048
     Dates: start: 20130923, end: 20150616
  7. RISPERIDONE. [Suspect]
     Active Substance: RISPERIDONE
     Indication: BIPOLAR DISORDER
     Dosage: IN VARYING DOSES OF 1 MG, 2 MG, 3 MG AND 4 MG
     Route: 048
     Dates: start: 20090814, end: 20100330
  8. RISPERIDONE. [Suspect]
     Active Substance: RISPERIDONE
     Indication: BIPOLAR DISORDER
     Dosage: IN VARYING DOSES OF 1 MG, 2 MG AND 4 MG
     Route: 048
     Dates: start: 20090811, end: 20130828
  9. RISPERIDONE. [Suspect]
     Active Substance: RISPERIDONE
     Indication: SCHIZOPHRENIA
     Dosage: VARYING DOSES OF 3 MG TWICE A DAY AND 4MG
     Route: 048
     Dates: start: 20130923, end: 20150616
  10. RISPERIDONE. [Suspect]
     Active Substance: RISPERIDONE
     Indication: BIPOLAR DISORDER
     Dosage: VARYING DOSE OF 3MG TWICE A DAY AND 4 MG
     Route: 048
     Dates: start: 20130923, end: 20150616
  11. RISPERDAL M-TAB [Suspect]
     Active Substance: RISPERIDONE
     Indication: BIPOLAR DISORDER
     Route: 048
     Dates: start: 20101024
  12. RISPERDAL [Suspect]
     Active Substance: RISPERIDONE
     Indication: SCHIZOPHRENIA
     Dosage: IN VARYING DOSES OF 2 MG, 3 MG AND 4 MG
     Route: 048
     Dates: start: 20050210, end: 20150825

REACTIONS (2)
  - Emotional disorder [Unknown]
  - Gynaecomastia [Unknown]
